FAERS Safety Report 4705728-1 (Version None)
Quarter: 2005Q3

REPORT INFORMATION
  Report Type: 
  Country: None (occurrence: None)
  Receive Date: 20050701
  Receipt Date: 20050627
  Transmission Date: 20060218
  Serious: Yes (Life-Threatening)
  Sender: FDA-Public Use
  Company Number: GB-MERCK-0506GBR00196

PATIENT
  Age: 81 Year
  Sex: Male
  Weight: 120 kg

DRUGS (19)
  1. FOSAMAX [Suspect]
     Indication: OSTEOPOROSIS
     Route: 048
     Dates: start: 20050505, end: 20050529
  2. BISOPROLOL [Concomitant]
     Indication: CARDIAC FAILURE
     Route: 048
     Dates: start: 20030101
  3. BUMETANIDE [Concomitant]
     Indication: CARDIAC FAILURE
     Route: 048
     Dates: start: 20040101
  4. SPIRONOLACTONE [Concomitant]
     Indication: CARDIAC FAILURE
     Route: 048
     Dates: start: 20031101
  5. AMLODIPINE MALEATE [Concomitant]
     Indication: ANGINA PECTORIS
     Route: 048
     Dates: start: 20040130
  6. AMLODIPINE MALEATE [Concomitant]
     Indication: HYPERTENSION
     Route: 048
     Dates: start: 20040130
  7. LISINOPRIL [Concomitant]
     Indication: CARDIAC FAILURE
     Route: 048
     Dates: start: 20031024
  8. ACETAMINOPHEN AND CODEINE PHOSPHATE [Concomitant]
     Indication: OSTEOARTHRITIS
     Route: 065
     Dates: start: 20050414
  9. BECLOMETHASONE DIPROPIONATE [Concomitant]
     Route: 065
     Dates: start: 20031104
  10. SIMVASTATIN [Concomitant]
     Route: 065
     Dates: start: 20031009
  11. ISOSORBIDE MONONITRATE [Concomitant]
     Route: 065
     Dates: start: 20030715
  12. ALBUTEROL SULFATE AND IPRATROPIUM BROMIDE [Concomitant]
     Route: 055
     Dates: start: 20030620
  13. ASPIRIN [Concomitant]
     Route: 065
     Dates: start: 20021112
  14. BETAXOLOL HYDROCHLORIDE [Concomitant]
     Route: 047
     Dates: start: 20010327
  15. LACTULOSE [Concomitant]
     Route: 065
     Dates: start: 20010315
  16. POLYVINYL ALCOHOL [Concomitant]
     Route: 047
     Dates: start: 20010314
  17. NICORANDIL [Concomitant]
     Route: 065
     Dates: start: 20000104
  18. NITROGLYCERIN [Concomitant]
     Route: 065
     Dates: start: 19991111
  19. FLUOXETINE [Concomitant]
     Route: 065
     Dates: start: 19970917

REACTIONS (4)
  - ANGIONEUROTIC OEDEMA [None]
  - NAUSEA [None]
  - ORAL MUCOSAL BLISTERING [None]
  - URTICARIA [None]
